FAERS Safety Report 15084252 (Version 1)
Quarter: 2018Q2

REPORT INFORMATION
  Report Type: Spontaneous
  Country: GB (occurrence: GB)
  Receive Date: 20180628
  Receipt Date: 20180628
  Transmission Date: 20180711
  Serious: Yes (Other)
  Sender: FDA-Public Use
  Company Number: GB-MYLANLABS-2018M1046568

PATIENT
  Sex: Male

DRUGS (3)
  1. METHOTREXATE. [Concomitant]
     Active Substance: METHOTREXATE
     Indication: STILL^S DISEASE
     Route: 065
  2. METHYLPREDNISOLONE. [Suspect]
     Active Substance: METHYLPREDNISOLONE
     Indication: STILL^S DISEASE
     Route: 042
  3. PREDNISOLONE. [Suspect]
     Active Substance: PREDNISOLONE
     Indication: STILL^S DISEASE
     Route: 048

REACTIONS (1)
  - Bipolar disorder [Unknown]
